FAERS Safety Report 21459035 (Version 1)
Quarter: 2022Q4

REPORT INFORMATION
  Report Type: Spontaneous
  Country: US (occurrence: None)
  Receive Date: 20221013
  Receipt Date: 20221013
  Transmission Date: 20230113
  Serious: Yes (Hospitalization)
  Sender: FDA-Public Use
  Company Number: None

PATIENT
  Sex: Female

DRUGS (1)
  1. CAPECITABINE [Suspect]
     Active Substance: CAPECITABINE
     Dosage: 1300MG BID ORAL
     Route: 048
     Dates: start: 202209

REACTIONS (7)
  - Drug ineffective [None]
  - Dyspnoea [None]
  - Paraesthesia [None]
  - Paraesthesia [None]
  - Erythema [None]
  - Diarrhoea [None]
  - Nausea [None]
